FAERS Safety Report 16145814 (Version 1)
Quarter: 2019Q2

REPORT INFORMATION
  Report Type: Spontaneous
  Country: US (occurrence: US)
  Receive Date: 20190401
  Receipt Date: 20190401
  Transmission Date: 20190711
  Serious: Yes (Hospitalization, Disabling)
  Sender: FDA-Public Use
  Company Number: None

PATIENT
  Sex: Female
  Weight: 170 kg

DRUGS (5)
  1. MIRENA [Suspect]
     Active Substance: LEVONORGESTREL
     Dates: start: 20171031, end: 20181031
  2. TYLENOL [Concomitant]
     Active Substance: ACETAMINOPHEN
  3. MOTRIN [Concomitant]
     Active Substance: IBUPROFEN
  4. IMMITREX [Concomitant]
  5. DIAMOX SEQUELS [Concomitant]
     Active Substance: ACETAZOLAMIDE

REACTIONS (8)
  - Idiopathic intracranial hypertension [None]
  - Vertigo [None]
  - Papilloedema [None]
  - Pain [None]
  - Blindness [None]
  - Impaired work ability [None]
  - Visual impairment [None]
  - Headache [None]
